FAERS Safety Report 6058717-1 (Version None)
Quarter: 2009Q1

REPORT INFORMATION
  Report Type: 
  Country: None (occurrence: None)
  Receive Date: 20090130
  Receipt Date: 20090120
  Transmission Date: 20090719
  Serious: Yes (Other)
  Sender: FDA-Public Use
  Company Number: DE-TEVA-184111ISR

PATIENT
  Age: 57 Year
  Sex: Female

DRUGS (2)
  1. ALENDRONIC ACID [Suspect]
     Indication: OSTEOPOROSIS PROPHYLAXIS
     Route: 048
     Dates: start: 20060101, end: 20081001
  2. ANASTROZOLE [Suspect]
     Indication: HORMONE THERAPY
     Route: 048
     Dates: start: 20060101, end: 20081001

REACTIONS (1)
  - GLAUCOMA [None]
